FAERS Safety Report 12386442 (Version 1)
Quarter: 2016Q2

REPORT INFORMATION
  Report Type: Spontaneous
  Country: US (occurrence: US)
  Receive Date: 20160519
  Receipt Date: 20160519
  Transmission Date: 20160815
  Serious: Yes (Hospitalization)
  Sender: FDA-Public Use
  Company Number: US-UNITED THERAPEUTICS-UNT-2016-007905

PATIENT
  Sex: Male

DRUGS (1)
  1. REMODULIN [Suspect]
     Active Substance: TREPROSTINIL
     Indication: PULMONARY ARTERIAL HYPERTENSION
     Dosage: 0.09375 ?G/KG, CONTINUING
     Route: 058
     Dates: start: 20110407

REACTIONS (5)
  - Hypometabolism [Unknown]
  - International normalised ratio decreased [Unknown]
  - Emotional distress [Unknown]
  - Dyspnoea [Unknown]
  - Loss of consciousness [Unknown]

NARRATIVE: CASE EVENT DATE: 201604
